FAERS Safety Report 9548222 (Version 3)
Quarter: 2014Q1

REPORT INFORMATION
  Report Type: Spontaneous
  Country: GB (occurrence: GB)
  Receive Date: 20130924
  Receipt Date: 20140122
  Transmission Date: 20141002
  Serious: Yes (Death)
  Sender: FDA-Public Use
  Company Number: GB-SANOFI-AVENTIS-2013SA092226

PATIENT
  Age: 70 Year
  Sex: Male
  Weight: 80 kg

DRUGS (17)
  1. CLEXANE [Suspect]
     Indication: HIP SURGERY
     Dosage: UNK
     Route: 058
     Dates: start: 20130715, end: 20130825
  2. CLEXANE [Suspect]
     Indication: DEEP VEIN THROMBOSIS
     Dosage: UNK
     Route: 058
     Dates: start: 20130715, end: 20130825
  3. CLEXANE [Suspect]
     Indication: HIP ARTHROPLASTY
     Dosage: UNK
     Route: 058
     Dates: start: 20130715, end: 20130825
  4. CLEXANE [Suspect]
     Indication: HIP SURGERY
     Route: 058
     Dates: start: 20130903, end: 20130905
  5. CLEXANE [Suspect]
     Indication: DEEP VEIN THROMBOSIS
     Route: 058
     Dates: start: 20130903, end: 20130905
  6. CLEXANE [Suspect]
     Indication: HIP ARTHROPLASTY
     Route: 058
     Dates: start: 20130903, end: 20130905
  7. XARELTO [Suspect]
     Indication: DEEP VEIN THROMBOSIS
     Route: 065
     Dates: start: 20130904, end: 20130907
  8. XARELTO [Suspect]
     Indication: THROMBOSIS PROPHYLAXIS
     Route: 065
     Dates: start: 20130904, end: 20130907
  9. LEVOTHYROXINE [Concomitant]
  10. OMEPRAZOLE [Concomitant]
  11. DUTASTERIDE [Concomitant]
  12. NATECAL D [Concomitant]
  13. RISEDRONATE SODIUM [Concomitant]
  14. CO-CODAMOL [Concomitant]
  15. THIAMINE [Concomitant]
  16. VITAMIN B [Concomitant]
  17. TAMSULOSIN [Concomitant]

REACTIONS (3)
  - Cardiac arrest [Fatal]
  - Pulmonary embolism [Fatal]
  - Drug ineffective [Unknown]
